FAERS Safety Report 16312485 (Version 2)
Quarter: 2019Q2

REPORT INFORMATION
  Report Type: Spontaneous
  Country: US (occurrence: US)
  Receive Date: 20190515
  Receipt Date: 20190523
  Transmission Date: 20190711
  Serious: Yes (Other)
  Sender: FDA-Public Use
  Company Number: US-JNJFOC-20190434827

PATIENT
  Age: 32 Year
  Sex: Female
  Weight: 120 kg

DRUGS (4)
  1. CLEAN + CLEAR ESSENTIALS FOAMING CLEANSER [Concomitant]
     Indication: REMOVAL OF INERT MATTER FROM SKIN OR SUBCUTANEOUS TISSUE
     Dosage: AT NIGHT
     Route: 061
  2. AVEENO ULTRA-CALMING DAILY MOISTURIZER SPF15 [Suspect]
     Active Substance: AVOBENZONE\OCTINOXATE\OCTISALATE
     Indication: DRY SKIN PROPHYLAXIS
     Dosage: PEA SIZED AMOUNT TWICE A DAY
     Route: 061
  3. IRON [Concomitant]
     Active Substance: IRON
     Indication: MINERAL SUPPLEMENTATION
     Route: 065
  4. IRON [Concomitant]
     Active Substance: IRON
     Indication: ANAEMIA
     Route: 065

REACTIONS (2)
  - Thermal burn [Recovering/Resolving]
  - Dermatitis contact [Recovered/Resolved]

NARRATIVE: CASE EVENT DATE: 20190410
